FAERS Safety Report 8074879-9 (Version None)
Quarter: 2012Q1

REPORT INFORMATION
  Report Type: 
  Country: None (occurrence: None)
  Receive Date: 20120126
  Receipt Date: 20120123
  Transmission Date: 20120608
  Serious: Yes (Life-Threatening)
  Sender: FDA-Public Use
  Company Number: FR-ASTRAZENECA-2012SE04714

PATIENT
  Age: 12966 Day
  Sex: Female

DRUGS (5)
  1. DIPRIVAN [Suspect]
     Indication: GENERAL ANAESTHESIA
     Route: 042
     Dates: start: 20110909, end: 20110909
  2. DIPRIVAN [Suspect]
     Route: 042
     Dates: start: 20110909, end: 20110909
  3. CELOCURINE [Suspect]
     Indication: ENDOTRACHEAL INTUBATION
     Route: 042
     Dates: start: 20110909, end: 20110909
  4. SUFENTA PRESERVATIVE FREE [Suspect]
     Indication: GENERAL ANAESTHESIA
     Route: 042
     Dates: start: 20110909, end: 20110909
  5. CEFAZOLIN [Suspect]
     Indication: ANTIBIOTIC PROPHYLAXIS
     Route: 042
     Dates: start: 20110909, end: 20110909

REACTIONS (1)
  - ANAPHYLACTIC SHOCK [None]
